FAERS Safety Report 11885020 (Version 3)
Quarter: 2016Q1

REPORT INFORMATION
  Report Type: Spontaneous
  Country: IT (occurrence: IT)
  Receive Date: 20160104
  Receipt Date: 20160120
  Transmission Date: 20160526
  Serious: Yes (Other)
  Sender: FDA-Public Use
  Company Number: IT-SA-2015SA222950

PATIENT
  Age: 63 Year
  Sex: Female
  Weight: 86 kg

DRUGS (5)
  1. OLMESARTAN [Concomitant]
     Active Substance: OLMESARTAN
  2. ASPIRIN. [Concomitant]
     Active Substance: ASPIRIN
  3. METFORMIN [Concomitant]
     Active Substance: METFORMIN HYDROCHLORIDE
  4. ROSUVASTATIN [Concomitant]
     Active Substance: ROSUVASTATIN
  5. GLIBENCLAMIDE [Suspect]
     Active Substance: GLYBURIDE
     Indication: TYPE 2 DIABETES MELLITUS
     Route: 065

REACTIONS (6)
  - Hypoglycaemia [Recovered/Resolved]
  - Confusional state [Recovering/Resolving]
  - Chest discomfort [Recovering/Resolving]
  - Obesity [Recovered/Resolved]
  - Angina pectoris [Recovering/Resolving]
  - Palpitations [Recovering/Resolving]
